FAERS Safety Report 4268835-6 (Version None)
Quarter: 2004Q1

REPORT INFORMATION
  Report Type: 
  Country: None (occurrence: None)
  Receive Date: 20040108
  Receipt Date: 20031230
  Transmission Date: 20041129
  Serious: Yes (Hospitalization, Other)
  Sender: FDA-Public Use
  Company Number: 2003006674

PATIENT
  Age: 69 Year
  Sex: Male
  Weight: 94.8018 kg

DRUGS (18)
  1. TIKOSYN [Suspect]
     Indication: ATRIAL FIBRILLATION
     Dosage: 1000 MG (BID), ORAL
     Route: 048
  2. FUROSEMIDE [Suspect]
     Indication: FLUID RETENTION
     Dosage: 180 MG (DAILY)
  3. METOLAZONE [Suspect]
     Indication: ILL-DEFINED DISORDER
     Dates: end: 20021201
  4. TUSSIONEX [Suspect]
     Indication: ILL-DEFINED DISORDER
  5. IOPHEN-C (CHORPHENAMINE MALEATE, CODEINE SULFATE, IODINATED GLYCEROL) [Suspect]
     Indication: ILL-DEFINED DISORDER
  6. MEXILETINE HCL [Suspect]
     Indication: ARRHYTHMIA
     Dosage: 900 MG (TID)
     Dates: start: 20010807
  7. METOPROLOL SUCCINATE [Concomitant]
  8. METOPROLOL SUCCINATE [Concomitant]
  9. OMEPRAZOLE [Concomitant]
  10. DIGOXIN [Concomitant]
  11. ENALAPRIL MALEATE [Concomitant]
  12. GLIMEPIRIDE [Concomitant]
  13. PAROXETINE HCL [Concomitant]
  14. WARFARIN SODIUM [Concomitant]
  15. SULINDAC [Concomitant]
  16. SPIRONOLACTONE [Concomitant]
  17. MAGNESIUM OXIDE (MAGNESIUM OXIDE) [Concomitant]
  18. INSULIN [Concomitant]

REACTIONS (21)
  - BLOOD CALCIUM DECREASED [None]
  - BLOOD CHLORIDE INCREASED [None]
  - BLOOD GLUCOSE FLUCTUATION [None]
  - BRONCHITIS [None]
  - CHOKING [None]
  - COUGH [None]
  - DEPRESSED LEVEL OF CONSCIOUSNESS [None]
  - DIFFICULTY IN WALKING [None]
  - DIZZINESS [None]
  - DYSPEPSIA [None]
  - DYSPNOEA [None]
  - FEELING ABNORMAL [None]
  - MEDICATION ERROR [None]
  - PALPITATIONS [None]
  - PCO2 DECREASED [None]
  - PRODUCTIVE COUGH [None]
  - RENAL FAILURE [None]
  - TREATMENT NONCOMPLIANCE [None]
  - VENTRICULAR TACHYCARDIA [None]
  - VOMITING [None]
  - WEIGHT INCREASED [None]
